FAERS Safety Report 12371102 (Version 1)
Quarter: 2016Q2

REPORT INFORMATION
  Report Type: Spontaneous
  Country: FR (occurrence: FR)
  Receive Date: 20160516
  Receipt Date: 20160516
  Transmission Date: 20160815
  Serious: Yes (Other)
  Sender: FDA-Public Use
  Company Number: FR-009507513-1605FRA007165

PATIENT
  Age: 64 Year
  Sex: Female

DRUGS (1)
  1. IMIPENEM AND CILASTATIN [Suspect]
     Active Substance: CILASTATIN SODIUM\IMIPENEM
     Dosage: 500 MG, QID
     Route: 041
     Dates: start: 20150722, end: 20150805

REACTIONS (2)
  - Seizure [Unknown]
  - Antibiotic level above therapeutic [Recovered/Resolved]

NARRATIVE: CASE EVENT DATE: 20150805
